FAERS Safety Report 7441935-5 (Version None)
Quarter: 2011Q2

REPORT INFORMATION
  Report Type: 
  Country: None (occurrence: None)
  Receive Date: 20110428
  Receipt Date: 20100616
  Transmission Date: 20111010
  Serious: No
  Sender: FDA-Public Use
  Company Number: US-ASTRAZENECA-2010SE28208

PATIENT
  Age: 62 Year
  Sex: Female
  Weight: 72.6 kg

DRUGS (5)
  1. PAXIL [Concomitant]
  2. PANTOPRAZOLE [Concomitant]
     Indication: GASTROOESOPHAGEAL REFLUX DISEASE
  3. ZOMIG [Suspect]
     Indication: MIGRAINE
     Route: 048
  4. VITAMIN D [Concomitant]
     Indication: OSTEOPENIA
  5. SYNTHROID [Concomitant]
     Indication: THYROID DISORDER

REACTIONS (1)
  - BUNDLE BRANCH BLOCK [None]
